FAERS Safety Report 6987397-3 (Version None)
Quarter: 2010Q3

REPORT INFORMATION
  Report Type: 
  Country: None (occurrence: None)
  Receive Date: 20100916
  Receipt Date: 20100901
  Transmission Date: 20110219
  Serious: Yes (Other)
  Sender: FDA-Public Use
  Company Number: PHHY2010US58059

PATIENT
  Age: 48 Year
  Sex: Female

DRUGS (13)
  1. DIOVAN HCT [Suspect]
  2. LITHIUM CARBONATE [Concomitant]
  3. VENLAFAXINE HYDROCHLORIDE [Suspect]
  4. MULTI-VITAMINS [Suspect]
  5. PROZAC [Suspect]
  6. WELLBUTRIN [Suspect]
  7. SYNTHROID [Concomitant]
  8. TRICOR [Concomitant]
  9. PRAVASTATIN [Concomitant]
  10. ACTOS [Concomitant]
  11. LITHIUM CARBONATE [Concomitant]
  12. LAMOTRIGINE [Concomitant]
  13. XANAX [Concomitant]

REACTIONS (11)
  - ANXIETY [None]
  - BIPOLAR DISORDER [None]
  - HYPOAESTHESIA ORAL [None]
  - HYPOTENSION [None]
  - INSOMNIA [None]
  - MANIA [None]
  - NERVOUSNESS [None]
  - PRURITUS GENERALISED [None]
  - RENAL DISORDER [None]
  - SOMNAMBULISM [None]
  - WRONG TECHNIQUE IN DRUG USAGE PROCESS [None]
